FAERS Safety Report 7551765-1 (Version None)
Quarter: 2011Q2

REPORT INFORMATION
  Report Type: 
  Country: None (occurrence: None)
  Receive Date: 20110616
  Receipt Date: 20110609
  Transmission Date: 20111010
  Serious: Yes (Other)
  Sender: FDA-Public Use
  Company Number: A0931534A

PATIENT
  Sex: Female
  Weight: 58 kg

DRUGS (1)
  1. PARNATE [Suspect]
     Indication: DEPRESSION
     Dosage: 10MG PER DAY
     Dates: start: 20110101

REACTIONS (3)
  - MUSCLE ATROPHY [None]
  - NAUSEA [None]
  - DECREASED APPETITE [None]
